FAERS Safety Report 8914095 (Version 1)
Quarter: 2012Q4

REPORT INFORMATION
  Report Type: Report from Study
  Country: IL (occurrence: IL)
  Receive Date: 20121116
  Receipt Date: 20121116
  Transmission Date: 20130627
  Serious: Yes (Hospitalization)
  Sender: FDA-Public Use
  Company Number: IL-ABBOTT-12P-082-1006717-00

PATIENT
  Age: 37 Year
  Sex: Male

DRUGS (1)
  1. HUMIRA [Suspect]
     Indication: CROHN^S DISEASE
     Dates: start: 201009, end: 201109

REACTIONS (3)
  - Purpura [Recovered/Resolved]
  - Dermatitis psoriasiform [Recovered/Resolved]
  - Dermatitis atopic [Recovered/Resolved]
